FAERS Safety Report 22083158 (Version 2)
Quarter: 2023Q1

REPORT INFORMATION
  Report Type: Spontaneous
  Country: JP (occurrence: JP)
  Receive Date: 20230310
  Receipt Date: 20230324
  Transmission Date: 20230418
  Serious: Yes (Hospitalization, Other)
  Sender: FDA-Public Use
  Company Number: JP-MLMSERVICE-20230222-4118012-1

PATIENT
  Age: 2 Month
  Sex: Male
  Weight: 4.3 kg

DRUGS (5)
  1. FUROSEMIDE [Suspect]
     Active Substance: FUROSEMIDE
     Indication: Product used for unknown indication
     Route: 048
  2. VANCOMYCIN HYDROCHLORIDE [Suspect]
     Active Substance: VANCOMYCIN HYDROCHLORIDE
     Indication: Pneumonia
     Dosage: 18.2 MG/KG/DAY)
  3. MEROPENEM [Concomitant]
     Active Substance: MEROPENEM
     Indication: Evidence based treatment
  4. VANCOMYCIN HYDROCHLORIDE [Suspect]
     Active Substance: VANCOMYCIN HYDROCHLORIDE
     Indication: Pneumonia
     Dosage: 9.1 MG/KG/DAY
  5. VANCOMYCIN HYDROCHLORIDE [Suspect]
     Active Substance: VANCOMYCIN HYDROCHLORIDE
     Indication: Pneumonia
     Dosage: INITIAL DOSE (12.5 MG/KG) ADMINISTERED AT 5:00, 13:00, AND 21:00 (37.7 MG/KG/DAY)

REACTIONS (4)
  - Renal impairment [Recovered/Resolved]
  - Drug clearance decreased [Recovered/Resolved]
  - Drug level increased [Unknown]
  - Nephropathy toxic [Recovered/Resolved]
